FAERS Safety Report 10036713 (Version 2)
Quarter: 2014Q1

REPORT INFORMATION
  Report Type: Spontaneous
  Country: CA (occurrence: CA)
  Receive Date: 20140326
  Receipt Date: 20140330
  Transmission Date: 20141002
  Serious: Yes (Death)
  Sender: FDA-Public Use
  Company Number: CA-009507513-1403CAN011288

PATIENT
  Age: 28 Year
  Sex: Male

DRUGS (3)
  1. PEGETRON [Suspect]
     Indication: HEPATITIS C
     Dosage: PEGINTRON
     Route: 065
  2. PEGETRON [Suspect]
     Dosage: RIBAVIRIN
     Route: 065
  3. VICTRELIS [Suspect]
     Indication: HEPATITIS C
     Route: 048

REACTIONS (1)
  - Death [Fatal]
